FAERS Safety Report 11349484 (Version 2)
Quarter: 2015Q3

REPORT INFORMATION
  Report Type: Spontaneous
  Country: JP (occurrence: JP)
  Receive Date: 20150807
  Receipt Date: 20150909
  Transmission Date: 20151125
  Serious: Yes (Other)
  Sender: FDA-Public Use
  Company Number: JP-ROCHE-1617448

PATIENT
  Age: 49 Year
  Sex: Female

DRUGS (3)
  1. HERCEPTIN [Suspect]
     Active Substance: TRASTUZUMAB
     Indication: BREAST CANCER
     Dosage: UNCERTAIN DOSAGE AND FIVE COURSES
     Route: 041
     Dates: start: 201312
  2. PERJETA [Suspect]
     Active Substance: PERTUZUMAB
     Indication: BREAST CANCER
     Dosage: UNCERTAIN DOSAGE AND FIVE COURSES?STRENGTH: 420 MG/ML.
     Route: 041
     Dates: start: 201312
  3. DOCETAXEL. [Suspect]
     Active Substance: DOCETAXEL
     Indication: BREAST CANCER
     Route: 041
     Dates: start: 201312

REACTIONS (2)
  - Oedema peripheral [Unknown]
  - Face oedema [Unknown]
